FAERS Safety Report 10023985 (Version 1)
Quarter: 2014Q1

REPORT INFORMATION
  Report Type: Spontaneous
  Country: US (occurrence: None)
  Receive Date: 20140319
  Receipt Date: 20140319
  Transmission Date: 20141002
  Serious: Yes (Other)
  Sender: FDA-Public Use
  Company Number: None

PATIENT
  Age: 75 Year
  Sex: Female
  Weight: 63.5 kg

DRUGS (4)
  1. PRAVASTATIN GENERIC FOR PRAVACHOL [Suspect]
     Indication: BLOOD CHOLESTEROL INCREASED
     Dates: start: 20130909, end: 20131201
  2. ATENOLOL [Concomitant]
  3. FISH OIL [Concomitant]
  4. VITAMIN D [Concomitant]

REACTIONS (5)
  - Fatigue [None]
  - Myalgia [None]
  - Hypoaesthesia [None]
  - Asthenia [None]
  - Insomnia [None]
